FAERS Safety Report 17455162 (Version 1)
Quarter: 2020Q1

REPORT INFORMATION
  Report Type: Spontaneous
  Country: CA (occurrence: CA)
  Receive Date: 20200225
  Receipt Date: 20200225
  Transmission Date: 20200409
  Serious: Yes (Other)
  Sender: FDA-Public Use
  Company Number: CA-TEVA-2020-CA-1189397

PATIENT
  Age: 36 Year
  Sex: Male

DRUGS (5)
  1. ACT BORTEZOMIB [Suspect]
     Active Substance: BORTEZOMIB
     Indication: THROMBOTIC THROMBOCYTOPENIC PURPURA
     Route: 065
  2. CYCLOPHOSPHAMIDE. [Suspect]
     Active Substance: CYCLOPHOSPHAMIDE
     Indication: THROMBOTIC THROMBOCYTOPENIC PURPURA
     Route: 042
  3. METHYLPREDNISOLONE. [Suspect]
     Active Substance: METHYLPREDNISOLONE
     Indication: THROMBOTIC THROMBOCYTOPENIC PURPURA
     Dosage: 100 MG
     Route: 065
  4. RITUXIMAB. [Suspect]
     Active Substance: RITUXIMAB
     Indication: THROMBOTIC THROMBOCYTOPENIC PURPURA
     Route: 065
  5. APO-CYCLOSPORINE [Suspect]
     Active Substance: CYCLOSPORINE
     Indication: THROMBOTIC THROMBOCYTOPENIC PURPURA
     Route: 048

REACTIONS (11)
  - Hemianopia [Unknown]
  - Therapy non-responder [Unknown]
  - Abdominal abscess [Unknown]
  - Candida infection [Unknown]
  - Device related sepsis [Unknown]
  - Pneumonia klebsiella [Unknown]
  - Empyema [Unknown]
  - Brain oedema [Unknown]
  - Cerebral infarction [Unknown]
  - Enterococcal infection [Unknown]
  - Staphylococcal infection [Unknown]
